FAERS Safety Report 18731332 (Version 1)
Quarter: 2021Q1

REPORT INFORMATION
  Report Type: Other
  Country: US (occurrence: US)
  Receive Date: 20210112
  Receipt Date: 20210112
  Transmission Date: 20210419
  Serious: Yes (Other)
  Sender: FDA-Public Use
  Company Number: US-ROCHE-2746998

PATIENT
  Age: 68 Year
  Sex: Male

DRUGS (20)
  1. ENVARSUS XR [Concomitant]
     Active Substance: TACROLIMUS
     Dates: start: 20201105
  2. ATORVASTATIN [Concomitant]
     Active Substance: ATORVASTATIN
     Route: 048
  3. METOPROLOL SUCCINATE. [Concomitant]
     Active Substance: METOPROLOL SUCCINATE
     Route: 048
  4. DITROPAN XL [Concomitant]
     Active Substance: OXYBUTYNIN CHLORIDE
     Route: 048
  5. ASCORBIC ACID. [Concomitant]
     Active Substance: ASCORBIC ACID
     Route: 048
  6. INSULIN [Concomitant]
     Active Substance: INSULIN NOS
  7. LOSARTAN. [Concomitant]
     Active Substance: LOSARTAN
     Route: 048
  8. BACTRIM DS [Concomitant]
     Active Substance: SULFAMETHOXAZOLE\TRIMETHOPRIM
     Dosage: 800?160 MG PER TABLET
     Route: 048
  9. ENVARSUS XR [Concomitant]
     Active Substance: TACROLIMUS
     Route: 048
  10. ASPIRIN. [Concomitant]
     Active Substance: ASPIRIN
     Route: 048
  11. MELATONIN [Concomitant]
     Active Substance: MELATONIN
     Route: 048
  12. ENVARSUS XR [Concomitant]
     Active Substance: TACROLIMUS
     Route: 048
  13. FLOMAX [Concomitant]
     Active Substance: TAMSULOSIN HYDROCHLORIDE
     Route: 048
  14. VALCYTE [Suspect]
     Active Substance: VALGANCICLOVIR HYDROCHLORIDE
     Indication: PRODUCT USED FOR UNKNOWN INDICATION
     Dosage: 450MG TABLET
     Route: 048
  15. CELLCEPT [Suspect]
     Active Substance: MYCOPHENOLATE MOFETIL\MYCOPHENOLATE MOFETIL HYDROCHLORIDE
     Indication: PRODUCT USED FOR UNKNOWN INDICATION
     Route: 048
  16. DELTASONE [Concomitant]
     Active Substance: PREDNISONE
     Route: 048
  17. AMLODIPINE [Concomitant]
     Active Substance: AMLODIPINE BESYLATE
     Route: 048
  18. PRILOSEC [Concomitant]
     Active Substance: OMEPRAZOLE MAGNESIUM
     Route: 048
  19. MAGNESIUM OXIDE. [Concomitant]
     Active Substance: MAGNESIUM OXIDE
     Dosage: 3 TABLETS AT NOON AND 2 TABLETS IN THE EVENING
     Route: 048
  20. ULTRAM [Concomitant]
     Active Substance: TRAMADOL HYDROCHLORIDE
     Route: 048

REACTIONS (10)
  - Back pain [Unknown]
  - Nocturia [Recovered/Resolved]
  - Off label use [Unknown]
  - Spirometry abnormal [Recovering/Resolving]
  - Intentional product use issue [Unknown]
  - Sleep apnoea syndrome [Recovering/Resolving]
  - Weight increased [Recovering/Resolving]
  - Leukopenia [Unknown]
  - Overweight [Recovering/Resolving]
  - Cytomegalovirus test positive [Unknown]

NARRATIVE: CASE EVENT DATE: 20201008
